FAERS Safety Report 11998397 (Version 1)
Quarter: 2016Q1

REPORT INFORMATION
  Report Type: Spontaneous
  Country: GB (occurrence: GB)
  Receive Date: 20160203
  Receipt Date: 20160203
  Transmission Date: 20160526
  Serious: Yes (Other)
  Sender: FDA-Public Use
  Company Number: GB-ROXANE LABORATORIES, INC.-2016-RO-00184RO

PATIENT
  Age: 86 Year
  Sex: Male

DRUGS (2)
  1. CODEINE SULFATE TABLET USP [Suspect]
     Active Substance: CODEINE SULFATE
     Indication: BACK PAIN
     Dosage: 60 MG
     Route: 048
  2. PARACETAMOL [Concomitant]
     Active Substance: ACETAMINOPHEN
     Indication: BACK PAIN
     Dosage: 1 G
     Route: 048

REACTIONS (4)
  - Abdominal pain upper [Recovered/Resolved]
  - Sphincter of Oddi dysfunction [Recovered/Resolved]
  - Blood bilirubin increased [Unknown]
  - Thrombocytopenia [Unknown]
